FAERS Safety Report 9499905 (Version 1)
Quarter: 2013Q3

REPORT INFORMATION
  Report Type: Spontaneous
  Country: US (occurrence: US)
  Receive Date: 20130905
  Receipt Date: 20130905
  Transmission Date: 20140515
  Serious: No
  Sender: FDA-Public Use
  Company Number: US-ASTRAZENECA-2013SE20497

PATIENT
  Age: 48 Year
  Sex: Male
  Weight: 88.5 kg

DRUGS (7)
  1. SYMBICORT [Suspect]
     Indication: BRONCHIAL HYPERREACTIVITY
     Dosage: 1 PUFFS TWO TIMES A DAY
     Route: 055
  2. SYMBICORT [Suspect]
     Indication: BRONCHIAL HYPERREACTIVITY
     Dosage: 2 PUFFS TWO TIMES A ADAY
     Route: 055
     Dates: start: 20130201, end: 20130213
  3. SYMBICORT [Suspect]
     Indication: BRONCHIAL HYPERREACTIVITY
     Route: 055
     Dates: start: 20130325
  4. TOPROL [Suspect]
     Indication: PROPHYLAXIS
     Route: 048
     Dates: start: 2003
  5. CRESTOR [Suspect]
     Indication: STENT PLACEMENT
     Route: 048
     Dates: start: 2003
  6. ALTACE [Concomitant]
     Indication: PROPHYLAXIS
     Route: 048
     Dates: start: 2003
  7. ASPIRIN [Concomitant]
     Indication: STENT PLACEMENT
     Route: 048
     Dates: start: 2003

REACTIONS (3)
  - Chest discomfort [Unknown]
  - Cough [Unknown]
  - Intentional drug misuse [Unknown]
